FAERS Safety Report 12074709 (Version 25)
Quarter: 2021Q1

REPORT INFORMATION
  Report Type: Report from Study
  Country: CA (occurrence: CA)
  Receive Date: 20160212
  Receipt Date: 20210210
  Transmission Date: 20210419
  Serious: Yes (Other)
  Sender: FDA-Public Use
  Company Number: PHHY2010CA80150

PATIENT
  Age: 73 Year
  Sex: Female

DRUGS (10)
  1. SANDOSTATIN LAR DEPOT [Suspect]
     Active Substance: OCTREOTIDE ACETATE
     Dosage: 20 MG, QMO
     Route: 030
     Dates: start: 20110214
  2. SANDOSTATIN LAR DEPOT [Suspect]
     Active Substance: OCTREOTIDE ACETATE
     Dosage: 30 MG, QMO
     Route: 030
     Dates: start: 20140226
  3. SANDOSTATIN LAR DEPOT [Suspect]
     Active Substance: OCTREOTIDE ACETATE
     Dosage: 20 MG, QMO (ONCE A MONTH)
     Route: 030
     Dates: start: 20160208, end: 20170310
  4. SANDOSTATIN LAR DEPOT [Suspect]
     Active Substance: OCTREOTIDE ACETATE
     Dosage: 30 MG, QMO
     Route: 030
  5. SANDOSTATIN LAR DEPOT [Suspect]
     Active Substance: OCTREOTIDE ACETATE
     Dosage: 30 MG, QMO
     Route: 030
     Dates: start: 20120723
  6. SANDOSTATIN LAR DEPOT [Suspect]
     Active Substance: OCTREOTIDE ACETATE
     Dosage: 30 MG, QMO
     Route: 030
     Dates: start: 20150508
  7. SANDOSTATIN LAR DEPOT [Suspect]
     Active Substance: OCTREOTIDE ACETATE
     Dosage: 20 MG, QMO
     Route: 030
     Dates: start: 20160112
  8. SANDOSTATIN LAR DEPOT [Suspect]
     Active Substance: OCTREOTIDE ACETATE
     Dosage: 30 MG, QMO
     Route: 030
     Dates: start: 20110714
  9. SANDOSTATIN LAR DEPOT [Suspect]
     Active Substance: OCTREOTIDE ACETATE
     Indication: CARCINOID TUMOUR OF THE CAECUM
     Dosage: 30 MG, QMO
     Route: 030
     Dates: start: 20100927
  10. SANDOSTATIN LAR DEPOT [Suspect]
     Active Substance: OCTREOTIDE ACETATE
     Dosage: 10 MG, QMO (ONCE A MONTH)
     Route: 030
     Dates: start: 20170407

REACTIONS (26)
  - Decreased appetite [Unknown]
  - Injection site mass [Unknown]
  - Injection site erythema [Unknown]
  - Back injury [Unknown]
  - Alopecia [Unknown]
  - Blood pressure increased [Unknown]
  - Pain in extremity [Unknown]
  - Asthenopia [Unknown]
  - Oropharyngeal pain [Unknown]
  - Injection site pain [Unknown]
  - Arthralgia [Not Recovered/Not Resolved]
  - Hypoaesthesia [Unknown]
  - Inflammation [Unknown]
  - Ocular discomfort [Unknown]
  - Back pain [Unknown]
  - Cataract [Unknown]
  - Cough [Unknown]
  - Constipation [Unknown]
  - Injection site swelling [Not Recovered/Not Resolved]
  - Intestinal obstruction [Unknown]
  - Fall [Unknown]
  - Insomnia [Unknown]
  - Body temperature decreased [Unknown]
  - Pulse abnormal [Unknown]
  - Sinusitis [Unknown]
  - Asthenia [Unknown]

NARRATIVE: CASE EVENT DATE: 201410
